FAERS Safety Report 24455420 (Version 2)
Quarter: 2024Q4

REPORT INFORMATION
  Report Type: Report from Study
  Country: RO (occurrence: RO)
  Receive Date: 20241017
  Receipt Date: 20241018
  Transmission Date: 20250115
  Serious: No
  Sender: ROCHE
  Company Number: RO-ROCHE-3498030

PATIENT
  Age: 51 Year
  Sex: Female
  Weight: 72.0 kg

DRUGS (1)
  1. MABTHERA [Suspect]
     Active Substance: RITUXIMAB
     Indication: Non-Hodgkin^s lymphoma
     Route: 058

REACTIONS (5)
  - Dizziness [Unknown]
  - Anaemia [Unknown]
  - Memory impairment [Unknown]
  - Malaise [Unknown]
  - White blood cell count increased [Unknown]
